FAERS Safety Report 7043351-7 (Version None)
Quarter: 2010Q3

REPORT INFORMATION
  Report Type: 
  Country: None (occurrence: None)
  Receive Date: 20100929
  Receipt Date: 20100805
  Transmission Date: 20110219
  Serious: No
  Sender: FDA-Public Use
  Company Number: US-WYE-H16809410

PATIENT
  Age: 64 Year
  Sex: Male
  Weight: 113.5 kg

DRUGS (6)
  1. PRISTIQ [Suspect]
     Indication: ANXIETY
     Dosage: 50 MG 1X PER 1 DAY, ORAL
     Route: 048
     Dates: start: 20100730
  2. PRISTIQ [Suspect]
     Indication: DEPRESSION
     Dosage: 50 MG 1X PER 1 DAY, ORAL
     Route: 048
     Dates: start: 20100730
  3. XANAX [Concomitant]
  4. POTASSIUM CITRATE [Concomitant]
  5. PREVACID [Concomitant]
  6. COUMADIN [Concomitant]

REACTIONS (1)
  - MEDICATION RESIDUE [None]
